FAERS Safety Report 8375922-X (Version None)
Quarter: 2012Q2

REPORT INFORMATION
  Report Type: 
  Country: None (occurrence: None)
  Receive Date: 20120522
  Receipt Date: 20120514
  Transmission Date: 20120825
  Serious: Yes (Disabling)
  Sender: FDA-Public Use
  Company Number: AT-BRISTOL-MYERS SQUIBB COMPANY-16590309

PATIENT
  Age: 20 Year
  Sex: Female

DRUGS (13)
  1. QUETIAPINE FUMARATE [Suspect]
     Indication: DEPRESSION
     Dates: start: 20100101, end: 20110401
  2. TRAZODONE HCL [Concomitant]
     Dates: start: 20100101, end: 20110401
  3. LITHIUM CARBONATE [Suspect]
     Indication: DEPRESSION
     Dates: start: 20110401
  4. ABILIFY [Suspect]
     Indication: DEPRESSION
     Dates: start: 20100101
  5. ESCITALOPRAM [Suspect]
     Indication: DEPRESSION
     Dates: start: 20090101
  6. ZIPRASIDONE HYDROCHLORIDE [Suspect]
     Indication: DEPRESSION
     Dates: start: 20090101, end: 20100101
  7. ABILIFY [Suspect]
     Indication: ANOREXIA NERVOSA
     Dates: start: 20100101
  8. ESCITALOPRAM [Suspect]
     Indication: ANOREXIA NERVOSA
     Dates: start: 20090101
  9. QUETIAPINE FUMARATE [Suspect]
     Indication: ANOREXIA NERVOSA
     Dates: start: 20100101, end: 20110401
  10. ZIPRASIDONE HYDROCHLORIDE [Suspect]
     Indication: ANOREXIA NERVOSA
     Dates: start: 20090101, end: 20100101
  11. EUTHYROX [Concomitant]
     Dosage: DOSAGE FORM: 50MG FROM 2008-09,75 MG FROM 2009-10,100MG SINCE 2010-ONG
  12. PANTOPRAZOLE SODIUM [Concomitant]
     Dates: start: 20100101
  13. LITHIUM CARBONATE [Suspect]
     Indication: ANOREXIA NERVOSA
     Dates: start: 20110401

REACTIONS (2)
  - SPINAL DISORDER [None]
  - WEIGHT INCREASED [None]
